FAERS Safety Report 22277995 (Version 2)
Quarter: 2023Q2

REPORT INFORMATION
  Report Type: Spontaneous
  Country: US (occurrence: US)
  Receive Date: 20230503
  Receipt Date: 20230526
  Transmission Date: 20230722
  Serious: Yes (Other)
  Sender: FDA-Public Use
  Company Number: US-AUROBINDO-AUR-APL-2023-033146

PATIENT
  Sex: Female

DRUGS (12)
  1. CLONAZEPAM [Suspect]
     Active Substance: CLONAZEPAM
     Indication: Catatonia
     Dosage: 0.5 MILLIGRAM, TWO TIMES A DAY
     Route: 065
  2. LORAZEPAM [Suspect]
     Active Substance: LORAZEPAM
     Indication: Catatonia
     Dosage: UNK
     Route: 065
  3. LORAZEPAM [Suspect]
     Active Substance: LORAZEPAM
     Dosage: 2 MILLIGRAM, 3 TIMES A DAY
     Route: 065
  4. LORAZEPAM [Suspect]
     Active Substance: LORAZEPAM
     Dosage: 2 MILLIGRAM, ONCE A DAY
     Route: 065
  5. LURASIDONE [Suspect]
     Active Substance: LURASIDONE
     Indication: Bipolar disorder
     Dosage: 40 MILLIGRAM
     Route: 065
  6. LURASIDONE [Suspect]
     Active Substance: LURASIDONE
     Dosage: UNK
     Route: 065
  7. PRAZOSIN [Suspect]
     Active Substance: PRAZOSIN
     Indication: Post-traumatic stress disorder
     Dosage: UNK
     Route: 065
  8. ZOLPIDEM [Suspect]
     Active Substance: ZOLPIDEM TARTRATE
     Indication: Catatonia
     Dosage: 10 MILLIGRAM, 3 TIMES A DAY
     Route: 048
  9. ZOLPIDEM [Suspect]
     Active Substance: ZOLPIDEM TARTRATE
     Dosage: 5 MILLIGRAM, 3 TIMES A DAY
     Route: 048
  10. LITHIUM [Suspect]
     Active Substance: LITHIUM
     Indication: Bipolar disorder
     Dosage: UNK
     Route: 065
  11. LITHIUM [Suspect]
     Active Substance: LITHIUM
     Dosage: 600 MILLIGRAM, ONCE A DAY (AT BEDTIME)
     Route: 065
  12. FLUDROCORTISONE [Concomitant]
     Active Substance: FLUDROCORTISONE
     Indication: Product used for unknown indication
     Dosage: UNK
     Route: 065

REACTIONS (7)
  - Drug ineffective [Unknown]
  - Therapeutic response unexpected [Unknown]
  - Therapeutic product effect delayed [Unknown]
  - Condition aggravated [Recovered/Resolved]
  - Hypotension [Unknown]
  - Drug intolerance [Unknown]
  - Derealisation [Recovered/Resolved]
